FAERS Safety Report 6990587-7 (Version None)
Quarter: 2010Q3

REPORT INFORMATION
  Report Type: 
  Country: None (occurrence: None)
  Receive Date: 20100916
  Receipt Date: 20100706
  Transmission Date: 20110219
  Serious: Yes (Other)
  Sender: FDA-Public Use
  Company Number: CH-PFIZER INC-2010084391

PATIENT
  Age: 86 Year
  Sex: Male

DRUGS (4)
  1. LYRICA [Suspect]
     Dosage: UNK
  2. RANIBIZUMAB [Suspect]
     Indication: MACULAR DEGENERATION
     Dosage: 0.5 MG, MONTHLY
     Route: 031
     Dates: start: 20091201, end: 20100301
  3. SYMFONA N [Concomitant]
     Dosage: UNK
  4. CONDROSULF [Concomitant]
     Dosage: UNK

REACTIONS (1)
  - ATRIAL FIBRILLATION [None]
